FAERS Safety Report 9358027 (Version 1)
Quarter: 2013Q2

REPORT INFORMATION
  Report Type: Spontaneous
  Country: US (occurrence: US)
  Receive Date: 20130620
  Receipt Date: 20130620
  Transmission Date: 20140414
  Serious: No
  Sender: FDA-Public Use
  Company Number: US-PFIZER INC-2013180469

PATIENT
  Age: 70 Year
  Sex: Female
  Weight: 74.83 kg

DRUGS (14)
  1. GENOTROPIN MQ [Suspect]
     Indication: GROWTH HORMONE DEFICIENCY
     Dosage: 0.2 MG, 1X/DAY AT BEDTIME
     Route: 058
     Dates: start: 201302
  2. SINGULAIR [Concomitant]
     Dosage: 4 MG, UNK
  3. SERTRALINE [Concomitant]
     Dosage: 25 MG, UNK
  4. SYNTHROID [Concomitant]
     Dosage: 25 UG, UNK
  5. SUMATRIPTAN [Concomitant]
     Dosage: 25 MG, UNK
  6. SIMVASTATIN [Concomitant]
     Dosage: 5 MG, UNK
  7. AMITRIPTYLINE [Concomitant]
     Dosage: 10 MG, UNK
  8. LOSARTAN POTASSIUM [Concomitant]
     Dosage: 25 MG, UNK
  9. VITAMIN D3 [Concomitant]
     Dosage: 400 IU, UNK
  10. CALCIUM CARBONATE/ERGOCALCIFEROL [Concomitant]
     Dosage: UNK
  11. CO-Q-10 [Concomitant]
     Dosage: 30 MG, UNK
  12. LEVOCETIRIZINE [Concomitant]
     Dosage: 5 MG, UNK
  13. QVAR [Concomitant]
     Dosage: 40 UG, UNK
  14. MAGNESIUM OXIDE [Concomitant]
     Dosage: 400 MG, UNK

REACTIONS (1)
  - Diarrhoea [Unknown]
